FAERS Safety Report 8072057-0 (Version None)
Quarter: 2012Q1

REPORT INFORMATION
  Report Type: 
  Country: None (occurrence: None)
  Receive Date: 20120126
  Receipt Date: 20111228
  Transmission Date: 20120608
  Serious: Yes (Other)
  Sender: FDA-Public Use
  Company Number: US-RB-032759-12

PATIENT
  Age: 90 Year
  Sex: Female

DRUGS (1)
  1. MUCINEX [Suspect]
     Indication: PRODUCT USED FOR UNKNOWN INDICATION
     Dosage: BEGAN 12/17 1 600MG TAB/DAY FOR 10 DAYS
     Route: 048
     Dates: start: 20111217

REACTIONS (2)
  - INCORRECT DRUG ADMINISTRATION DURATION [None]
  - POLYCYTHAEMIA [None]
